FAERS Safety Report 6440375-5 (Version None)
Quarter: 2009Q4

REPORT INFORMATION
  Report Type: 
  Country: None (occurrence: None)
  Receive Date: 20091113
  Receipt Date: 20091106
  Transmission Date: 20100525
  Serious: Yes (Hospitalization)
  Sender: FDA-Public Use
  Company Number: PHHO2009CA13812

PATIENT
  Sex: Male

DRUGS (2)
  1. RAD 666 RAD+TAB+PTR [Suspect]
     Indication: PROPHYLAXIS AGAINST TRANSPLANT REJECTION
     Dosage: 5 MG, BID
     Route: 048
     Dates: start: 20090629, end: 20091105
  2. NEORAL [Concomitant]

REACTIONS (8)
  - BACTERIAL INFECTION [None]
  - FUNGAL INFECTION [None]
  - H1N1 INFLUENZA [None]
  - HYPOXIA [None]
  - LUNG NEOPLASM [None]
  - MALAISE [None]
  - PYREXIA [None]
  - RESPIRATORY DISTRESS [None]
